FAERS Safety Report 9801571 (Version 3)
Quarter: 2015Q3

REPORT INFORMATION
  Report Type: Spontaneous
  Country: US (occurrence: US)
  Receive Date: 20140107
  Receipt Date: 20150730
  Transmission Date: 20151125
  Serious: No
  Sender: FDA-Public Use
  Company Number: US-GILEAD-2011-0035188

PATIENT
  Age: 44 Year
  Sex: Male

DRUGS (2)
  1. RANEXA [Suspect]
     Active Substance: RANOLAZINE
  2. RANEXA [Suspect]
     Active Substance: RANOLAZINE
     Indication: CARDIOVASCULAR DISORDER
     Dates: start: 20101206

REACTIONS (6)
  - Insomnia [Unknown]
  - Headache [Unknown]
  - Dizziness [Unknown]
  - Unevaluable event [Unknown]
  - Agitation [Unknown]
  - Therapeutic response unexpected [Unknown]

NARRATIVE: CASE EVENT DATE: 20101206
